FAERS Safety Report 9051307 (Version 2)
Quarter: 2014Q1

REPORT INFORMATION
  Report Type: Spontaneous
  Country: CY (occurrence: CY)
  Receive Date: 20130206
  Receipt Date: 20140225
  Transmission Date: 20141002
  Serious: Yes (Hospitalization)
  Sender: FDA-Public Use
  Company Number: PHHY2013CY003743

PATIENT
  Age: 76 Year
  Sex: Female

DRUGS (7)
  1. ACLASTA [Suspect]
     Indication: OSTEOPOROSIS
     Dosage: ONCE YEARLY
     Route: 042
     Dates: start: 201112
  2. ACLASTA [Suspect]
     Dosage: ONCE YEARLY
     Route: 042
     Dates: start: 20121217
  3. AMANTADINE [Concomitant]
     Indication: PARKINSON^S DISEASE
     Dosage: 200 MG, UNK
     Route: 048
     Dates: end: 20121231
  4. VELORIN [Concomitant]
     Indication: HYPERTENSION
     Dosage: 25 MG, UNK
     Route: 048
     Dates: end: 20121231
  5. L-DOPA [Concomitant]
     Indication: PARKINSON^S DISEASE
     Dosage: UNK UKN, UNK
     Dates: end: 20121231
  6. ARKETIS [Concomitant]
     Dosage: 20 MG
     Route: 048
  7. SINEMET [Concomitant]
     Indication: PARKINSON^S DISEASE
     Dosage: UNK UKN, UNK

REACTIONS (4)
  - Disorientation [Not Recovered/Not Resolved]
  - Hallucination [Recovering/Resolving]
  - Confusional state [Not Recovered/Not Resolved]
  - Malaise [Not Recovered/Not Resolved]
